FAERS Safety Report 18524696 (Version 2)
Quarter: 2020Q4

REPORT INFORMATION
  Report Type: Spontaneous
  Country: ES (occurrence: ES)
  Receive Date: 20201119
  Receipt Date: 20201211
  Transmission Date: 20210114
  Serious: Yes (Hospitalization, Other)
  Sender: FDA-Public Use
  Company Number: ES-SA-2020SA318076

PATIENT

DRUGS (1)
  1. LANTUS [Suspect]
     Active Substance: INSULIN GLARGINE
     Indication: TYPE 2 DIABETES MELLITUS
     Dosage: 26 IU
     Route: 058

REACTIONS (10)
  - Tremor [Unknown]
  - Cataract [Unknown]
  - Distractibility [Unknown]
  - Mobility decreased [Unknown]
  - Humerus fracture [Recovering/Resolving]
  - Loss of personal independence in daily activities [Unknown]
  - Adjustment disorder [Unknown]
  - Emotional distress [Unknown]
  - Blood glucose increased [Unknown]
  - Fall [Recovered/Resolved]

NARRATIVE: CASE EVENT DATE: 202003
